FAERS Safety Report 7832435-9 (Version None)
Quarter: 2011Q4

REPORT INFORMATION
  Report Type: 
  Country: None (occurrence: None)
  Receive Date: 20111023
  Receipt Date: 20111014
  Transmission Date: 20120403
  Serious: Yes (Other)
  Sender: FDA-Public Use
  Company Number: FR-VERTEX PHARMACEUTICALS INC.-AE-2011-000394

PATIENT
  Sex: Male
  Weight: 78 kg

DRUGS (5)
  1. RIBAVIRIN [Concomitant]
     Route: 048
  2. VX-950 [Suspect]
     Indication: HEPATITIS C
     Route: 048
     Dates: start: 20110526, end: 20110808
  3. PEGINTERFERON ALFA-2A [Concomitant]
     Indication: HEPATITIS C
     Route: 058
  4. PEGINTERFERON ALFA-2A [Concomitant]
     Route: 058
  5. RIBAVIRIN [Concomitant]
     Indication: HEPATITIS C
     Route: 048

REACTIONS (5)
  - INAPPROPRIATE SCHEDULE OF DRUG ADMINISTRATION [None]
  - THROMBOCYTOPENIA [None]
  - NEUTROPENIA [None]
  - ANAEMIA [None]
  - OFF LABEL USE [None]
